FAERS Safety Report 4599993-1 (Version None)
Quarter: 2005Q1

REPORT INFORMATION
  Report Type: 
  Country: None (occurrence: None)
  Receive Date: 20050303
  Receipt Date: 20050218
  Transmission Date: 20050727
  Serious: Yes (Hospitalization)
  Sender: FDA-Public Use
  Company Number: 2005UW01580

PATIENT
  Age: 53 Year
  Sex: Female
  Weight: 109.7705 kg

DRUGS (4)
  1. SEROQUEL [Suspect]
     Dosage: 100 MG HS PO
     Route: 048
     Dates: start: 20030101
  2. SEROQUEL [Suspect]
     Dosage: 25 MG QD PO
     Route: 048
  3. ANAFRANIL [Concomitant]
  4. ZANTAC [Concomitant]

REACTIONS (2)
  - ELECTROCARDIOGRAM QRS COMPLEX PROLONGED [None]
  - TACHYCARDIA [None]
